FAERS Safety Report 7422795-5 (Version None)
Quarter: 2011Q2

REPORT INFORMATION
  Report Type: 
  Country: None (occurrence: None)
  Receive Date: 20110411
  Receipt Date: 20110331
  Transmission Date: 20111010
  Serious: Yes (Death)
  Sender: FDA-Public Use
  Company Number: 2007-02186

PATIENT
  Age: 61 Year
  Sex: Female
  Weight: 53 kg

DRUGS (13)
  1. ASPIRIN [Concomitant]
  2. FUNGUARD (MICAFUNGIN SODIUM) [Concomitant]
  3. LASIX [Concomitant]
  4. KYTRIL [Concomitant]
  5. DEXAMETHASONE SODIUM PHOSPHATE [Concomitant]
  6. MAXIPIME [Concomitant]
  7. MEROPENEM [Concomitant]
  8. VELCADE [Suspect]
     Indication: MULTIPLE MYELOMA
     Dosage: 1.10 MG, INTRAVENOUS; 1.50 MG, INTRAVENOUS; 1.1 MG, INTRAVENOUS
     Route: 042
     Dates: start: 20070223, end: 20070305
  9. VELCADE [Suspect]
     Indication: MULTIPLE MYELOMA
     Dosage: 1.10 MG, INTRAVENOUS; 1.50 MG, INTRAVENOUS; 1.1 MG, INTRAVENOUS
     Route: 042
     Dates: start: 20070515, end: 20070612
  10. VELCADE [Suspect]
     Indication: MULTIPLE MYELOMA
     Dosage: 1.10 MG, INTRAVENOUS; 1.50 MG, INTRAVENOUS; 1.1 MG, INTRAVENOUS
     Route: 042
     Dates: start: 20070319, end: 20070424
  11. ALLOPURINOL [Concomitant]
  12. HYDROCORTISONE SODIUM SUCCINATE [Concomitant]
  13. EPOGEN [Concomitant]

REACTIONS (4)
  - HEPATITIS [None]
  - MULTIPLE MYELOMA [None]
  - NEOPLASM PROGRESSION [None]
  - PYREXIA [None]
